FAERS Safety Report 4357796-7 (Version None)
Quarter: 2004Q2

REPORT INFORMATION
  Report Type: 
  Country: None (occurrence: None)
  Receive Date: 20040513
  Receipt Date: 20040510
  Transmission Date: 20050107
  Serious: Yes (Hospitalization)
  Sender: FDA-Public Use
  Company Number: DE-MERCK-0405DEU00073

PATIENT
  Age: 59 Year
  Sex: Male
  Weight: 94 kg

DRUGS (8)
  1. AMIODARONE HYDROCHLORIDE [Suspect]
     Indication: TACHYCARDIA
     Route: 048
     Dates: start: 19960101
  2. DIGITOXIN [Concomitant]
     Indication: ATRIAL FIBRILLATION
     Route: 048
     Dates: start: 19950101
  3. LOSARTAN POTASSIUM [Concomitant]
     Indication: HYPERTENSION
     Route: 048
     Dates: start: 19990101
  4. OXCARBAZEPINE [Concomitant]
     Indication: EPILEPSY
     Route: 048
     Dates: start: 20010101
  5. PENTAERYTHRITOL TETRANITRATE [Concomitant]
     Indication: CORONARY ARTERY DISEASE
     Route: 048
     Dates: start: 19990101, end: 20031015
  6. PHENPROCOUMON [Suspect]
     Indication: ATRIAL FIBRILLATION
     Route: 048
     Dates: start: 20010101, end: 20031015
  7. PIRETANIDE [Concomitant]
     Indication: HYPERTENSION
     Route: 048
     Dates: start: 19950101
  8. ZOCOR [Suspect]
     Indication: HYPERLIPIDAEMIA
     Route: 048
     Dates: start: 20010101, end: 20031015

REACTIONS (5)
  - DRUG INTERACTION [None]
  - FALL [None]
  - HYPERLIPIDAEMIA [None]
  - PROTHROMBIN TIME PROLONGED [None]
  - TRAUMATIC HAEMATOMA [None]
